FAERS Safety Report 12853117 (Version 1)
Quarter: 2016Q4

REPORT INFORMATION
  Report Type: Spontaneous
  Country: US (occurrence: US)
  Receive Date: 20161016
  Receipt Date: 20161016
  Transmission Date: 20170207
  Serious: No
  Sender: FDA-Public Use
  Company Number: None

PATIENT
  Age: 53 Year
  Sex: Female

DRUGS (4)
  1. DOCETAXEL. [Concomitant]
     Active Substance: DOCETAXEL
  2. NEULASTA [Suspect]
     Active Substance: PEGFILGRASTIM
     Indication: BREAST CANCER
     Dosage: ?          OTHER FREQUENCY:ONCE POST CHEMO;?
     Route: 058
     Dates: start: 20161007
  3. CARBOPLATIN. [Concomitant]
     Active Substance: CARBOPLATIN
  4. TRAZTUZUMAB [Concomitant]

REACTIONS (2)
  - Confusional state [None]
  - Memory impairment [None]

NARRATIVE: CASE EVENT DATE: 20161008
